FAERS Safety Report 17139534 (Version 1)
Quarter: 2019Q4

REPORT INFORMATION
  Report Type: Report from Study
  Country: DE (occurrence: DE)
  Receive Date: 20191211
  Receipt Date: 20191211
  Transmission Date: 20200122
  Serious: Yes (Other)
  Sender: FDA-Public Use
  Company Number: DE-ROCHE-2487065

PATIENT
  Age: 63 Year
  Sex: Male

DRUGS (58)
  1. RITUXIMAB. [Suspect]
     Active Substance: RITUXIMAB
     Dosage: 750 MG, UNK
     Route: 041
     Dates: start: 20190204, end: 20190204
  2. DOXORUBICIN [Suspect]
     Active Substance: DOXORUBICIN
     Dosage: 100 MG, UNK
     Route: 041
     Dates: start: 20180724, end: 20180724
  3. CYCLOPHOSPHAMIDE. [Suspect]
     Active Substance: CYCLOPHOSPHAMIDE
     Indication: DIFFUSE LARGE B-CELL LYMPHOMA
     Dosage: 1500 MG, UNK
     Route: 041
     Dates: start: 20181106, end: 20181106
  4. CYCLOPHOSPHAMIDE. [Suspect]
     Active Substance: CYCLOPHOSPHAMIDE
     Dosage: 1500 MG, UNK
     Route: 041
     Dates: start: 20180814, end: 20180814
  5. VINCRISTINE [Suspect]
     Active Substance: VINCRISTINE
     Dosage: 2 MG, UNK
     Route: 041
     Dates: start: 20181016, end: 20181016
  6. VINCRISTINE [Suspect]
     Active Substance: VINCRISTINE
     Dosage: 2 MG, UNK
     Route: 041
     Dates: start: 20180926, end: 20180926
  7. RITUXIMAB. [Suspect]
     Active Substance: RITUXIMAB
     Dosage: 750 MG, UNK
     Route: 041
     Dates: start: 20180903, end: 20180903
  8. RITUXIMAB. [Suspect]
     Active Substance: RITUXIMAB
     Dosage: 750 MG, UNK
     Route: 041
     Dates: start: 20181204, end: 20181204
  9. RITUXIMAB. [Suspect]
     Active Substance: RITUXIMAB
     Dosage: 750 MG, UNK
     Route: 041
     Dates: start: 20181105, end: 20181105
  10. RITUXIMAB. [Suspect]
     Active Substance: RITUXIMAB
     Dosage: 750 MG, UNK
     Route: 041
     Dates: start: 20181015, end: 20181015
  11. PREDNISONE. [Suspect]
     Active Substance: PREDNISONE
     Dosage: 500 MG, UNK
     Route: 048
     Dates: start: 20181205, end: 20181209
  12. VINCRISTINE [Suspect]
     Active Substance: VINCRISTINE
     Dosage: 2 MG, UNK
     Route: 041
     Dates: start: 20180814, end: 20180814
  13. COTRIM FORTE [Concomitant]
     Active Substance: SULFAMETHOXAZOLE\TRIMETHOPRIM
     Indication: PROPHYLAXIS
     Dosage: 960 MG, UNK
     Route: 048
     Dates: start: 20180719
  14. RITUXIMAB. [Suspect]
     Active Substance: RITUXIMAB
     Indication: DIFFUSE LARGE B-CELL LYMPHOMA
     Dosage: 750 MG, UNK
     Route: 041
     Dates: start: 20190603, end: 20190603
  15. DOXORUBICIN [Suspect]
     Active Substance: DOXORUBICIN
     Dosage: 100 MG, UNK
     Route: 041
     Dates: start: 20140904, end: 20140904
  16. CYCLOPHOSPHAMIDE. [Suspect]
     Active Substance: CYCLOPHOSPHAMIDE
     Dosage: 1500 MG, UNK
     Route: 041
     Dates: start: 20180904, end: 20180904
  17. CYCLOPHOSPHAMIDE. [Suspect]
     Active Substance: CYCLOPHOSPHAMIDE
     Dosage: 1500 MG, UNK
     Route: 041
     Dates: start: 20181016, end: 20181016
  18. PREDNISONE. [Suspect]
     Active Substance: PREDNISONE
     Indication: DIFFUSE LARGE B-CELL LYMPHOMA
     Dosage: 500 MG, UNK
     Route: 048
     Dates: start: 20181106, end: 20181110
  19. PREDNISONE. [Suspect]
     Active Substance: PREDNISONE
     Dosage: 500 MG, UNK
     Route: 048
     Dates: start: 20180904, end: 20180908
  20. UROMITEXAN [Concomitant]
     Active Substance: MESNA
     Indication: PROPHYLAXIS
     Dosage: UNK
     Route: 048
     Dates: start: 20180724, end: 20181205
  21. TILIDINE [Concomitant]
     Active Substance: TILIDINE
     Dosage: UNK
     Route: 048
     Dates: start: 20181204
  22. FUROSEMIDE. [Concomitant]
     Active Substance: FUROSEMIDE
     Indication: PROPHYLAXIS
     Dosage: 20 MG, UNK
     Route: 042
     Dates: start: 20180724, end: 20181205
  23. DEXAMETHASONE. [Concomitant]
     Active Substance: DEXAMETHASONE
     Indication: PROPHYLAXIS
     Dosage: 20 MG, UNK
     Route: 042
     Dates: start: 20180727
  24. RITUXIMAB. [Suspect]
     Active Substance: RITUXIMAB
     Dosage: 750 MG, UNK
     Route: 041
     Dates: start: 20180813, end: 20180813
  25. RITUXIMAB. [Suspect]
     Active Substance: RITUXIMAB
     Dosage: 750 MG, UNK
     Route: 041
     Dates: start: 20190401, end: 20190401
  26. DOXORUBICIN [Suspect]
     Active Substance: DOXORUBICIN
     Dosage: 100 MG, UNK
     Route: 041
     Dates: start: 20180926, end: 20180926
  27. DOXORUBICIN [Suspect]
     Active Substance: DOXORUBICIN
     Dosage: 100 MG, UNK
     Route: 041
     Dates: start: 20181016, end: 20181016
  28. PREDNISONE. [Suspect]
     Active Substance: PREDNISONE
     Dosage: 500 MG, UNK
     Route: 048
     Dates: start: 20181016, end: 20181020
  29. ONDANSETRON [Concomitant]
     Active Substance: ONDANSETRON
     Indication: PROPHYLAXIS
     Dosage: 8 MG, UNK
     Route: 042
     Dates: start: 20180724
  30. RANITIDINE. [Concomitant]
     Active Substance: RANITIDINE
     Indication: PROPHYLAXIS
     Dosage: 1 AMPULLE, UNK
     Route: 042
     Dates: start: 20180723
  31. CYCLOPHOSPHAMIDE. [Suspect]
     Active Substance: CYCLOPHOSPHAMIDE
     Dosage: 1500 MG, UNK
     Route: 041
     Dates: start: 20180724, end: 20180724
  32. PREDNISONE. [Suspect]
     Active Substance: PREDNISONE
     Dosage: 500 MG, UNK
     Route: 048
     Dates: start: 20180814, end: 20180818
  33. VINCRISTINE [Suspect]
     Active Substance: VINCRISTINE
     Dosage: 2 MG, UNK
     Route: 041
     Dates: start: 20180903, end: 20180903
  34. SIMVASTATIN. [Concomitant]
     Active Substance: SIMVASTATIN
     Indication: HYPERCHOLESTEROLAEMIA
     Dosage: 20 MG, UNK
     Route: 048
  35. BISOPROLOL [Concomitant]
     Active Substance: BISOPROLOL
     Indication: HYPERTENSION
     Dosage: 5 MG, UNK
     Route: 048
  36. ALLOPURINOL. [Concomitant]
     Active Substance: ALLOPURINOL
     Indication: PROPHYLAXIS
     Dosage: 300 MG, UNK
     Route: 048
  37. RITUXIMAB. [Suspect]
     Active Substance: RITUXIMAB
     Dosage: 750 MG, UNK
     Route: 041
     Dates: start: 20180723, end: 20180723
  38. DOXORUBICIN [Suspect]
     Active Substance: DOXORUBICIN
     Indication: DIFFUSE LARGE B-CELL LYMPHOMA
     Route: 041
     Dates: start: 20181205, end: 20181205
  39. PREDNISONE. [Suspect]
     Active Substance: PREDNISONE
     Dosage: 500 MG, UNK
     Route: 048
     Dates: start: 20180926, end: 20180930
  40. TORASEMIDE [Concomitant]
     Active Substance: TORSEMIDE
     Indication: HYPERTENSION
     Dosage: 20 MG, UNK
     Route: 048
  41. FENISTIL [Concomitant]
     Active Substance: DIMETHINDENE
     Indication: PROPHYLAXIS
     Dosage: 1 AMPULLE, UNK
     Route: 042
     Dates: start: 20180727
  42. RAMIPRIL. [Concomitant]
     Active Substance: RAMIPRIL
     Indication: HYPERTENSION
     Dosage: 7.5 MG, UNK
     Route: 048
  43. PANTOZOLE [Concomitant]
     Active Substance: PANTOPRAZOLE SODIUM
     Indication: PROPHYLAXIS
     Dosage: UNK
     Route: 048
     Dates: start: 20180719
  44. PARACETAMOL [Concomitant]
     Active Substance: ACETAMINOPHEN
     Dosage: UNK MG, UNK
     Route: 048
     Dates: start: 20181126, end: 20181203
  45. RITUXIMAB. [Suspect]
     Active Substance: RITUXIMAB
     Dosage: 750 MG, UNK
     Route: 041
     Dates: start: 20180925, end: 20180925
  46. CYCLOPHOSPHAMIDE. [Suspect]
     Active Substance: CYCLOPHOSPHAMIDE
     Dosage: 1500 MG, UNK
     Route: 041
     Dates: start: 20181205, end: 20181205
  47. PREDNISONE. [Suspect]
     Active Substance: PREDNISONE
     Dosage: 500 MG, UNK
     Route: 048
     Dates: start: 20180724, end: 20180728
  48. VINCRISTINE [Suspect]
     Active Substance: VINCRISTINE
     Indication: DIFFUSE LARGE B-CELL LYMPHOMA
     Dosage: 2 MG, UNK
     Route: 041
     Dates: start: 20180724, end: 20180724
  49. VINCRISTINE [Suspect]
     Active Substance: VINCRISTINE
     Dosage: 2 MG, UNK
     Route: 041
     Dates: start: 20181205, end: 20181205
  50. PARACETAMOL [Concomitant]
     Active Substance: ACETAMINOPHEN
     Indication: PROPHYLAXIS
     Dosage: 1000 MG, UNK
     Route: 048
     Dates: start: 20180723
  51. DOXORUBICIN [Suspect]
     Active Substance: DOXORUBICIN
     Dosage: 100 MG, UNK
     Route: 041
     Dates: start: 20181106, end: 20181106
  52. DOXORUBICIN [Suspect]
     Active Substance: DOXORUBICIN
     Dosage: 100 MG, UNK
     Route: 041
     Dates: start: 20180814, end: 20180814
  53. CYCLOPHOSPHAMIDE. [Suspect]
     Active Substance: CYCLOPHOSPHAMIDE
     Dosage: 1500 MG, UNK
     Route: 041
     Dates: start: 20180926, end: 20180926
  54. VINCRISTINE [Suspect]
     Active Substance: VINCRISTINE
     Dosage: 2 MG, UNK
     Route: 041
     Dates: start: 20181106, end: 20181106
  55. UROMITEXAN [Concomitant]
     Active Substance: MESNA
     Dosage: 2.400 MG, UNK
     Route: 042
     Dates: start: 20180724, end: 20181205
  56. INNOHEP [Concomitant]
     Active Substance: TINZAPARIN SODIUM
     Indication: PROPHYLAXIS
     Dosage: 20000 UNK, UNK
     Route: 030
     Dates: start: 20180719
  57. ACICLOVIR [Concomitant]
     Active Substance: ACYCLOVIR
     Indication: PROPHYLAXIS
     Dosage: 1200 MG, UNK
     Route: 048
     Dates: start: 20180719
  58. CLOPIDOGREL [Concomitant]
     Active Substance: CLOPIDOGREL BISULFATE
     Indication: PROPHYLAXIS
     Dosage: 75 MG, UNK
     Route: 048
     Dates: start: 20180719

REACTIONS (16)
  - Lymphocyte count decreased [Recovered/Resolved]
  - Influenza like illness [Recovered/Resolved]
  - Gingivitis [Recovered/Resolved]
  - Vein discolouration [Recovered/Resolved]
  - Blood lactate dehydrogenase increased [Recovered/Resolved]
  - White blood cell count increased [Recovered/Resolved]
  - Blood creatinine increased [Recovered/Resolved]
  - Hypernatraemia [Not Recovered/Not Resolved]
  - Hyperkalaemia [Recovered/Resolved]
  - Polyneuropathy [Not Recovered/Not Resolved]
  - Blood alkaline phosphatase increased [Recovered/Resolved]
  - White blood cell count decreased [Recovered/Resolved]
  - Gamma-glutamyltransferase increased [Not Recovered/Not Resolved]
  - Neutrophil count decreased [Recovered/Resolved]
  - Dyspnoea [Not Recovered/Not Resolved]
  - Anaemia [Recovered/Resolved]

NARRATIVE: CASE EVENT DATE: 20180806
